FAERS Safety Report 18343823 (Version 1)
Quarter: 2020Q4

REPORT INFORMATION
  Report Type: Spontaneous
  Country: US (occurrence: US)
  Receive Date: 20201001
  Receipt Date: 20201001
  Transmission Date: 20210114
  Serious: Yes (Hospitalization)
  Sender: FDA-Public Use
  Company Number: None

PATIENT
  Sex: Female

DRUGS (24)
  1. ONDANSETRON [Concomitant]
     Active Substance: ONDANSETRON
  2. ATENOLOL. [Concomitant]
     Active Substance: ATENOLOL
  3. LOSARTAN POT [Concomitant]
     Active Substance: LOSARTAN POTASSIUM
  4. METHYLPRED [Concomitant]
     Active Substance: METHYLPREDNISOLONE
  5. FUROSEMIDE. [Concomitant]
     Active Substance: FUROSEMIDE
  6. HYDROCHLOROT [Concomitant]
     Active Substance: HYDROCHLOROTHIAZIDE
  7. LEFLUNOMIDE. [Concomitant]
     Active Substance: LEFLUNOMIDE
  8. NORTRIPTYLIN [Concomitant]
     Active Substance: NORTRIPTYLINE
  9. HUMIRA [Suspect]
     Active Substance: ADALIMUMAB
     Route: 058
     Dates: start: 20200821
  10. AMOX/K CLAV [Concomitant]
     Active Substance: AMOXICILLIN\CLAVULANATE POTASSIUM
  11. HYD POL/CPM [Concomitant]
  12. IBUPROFEN. [Concomitant]
     Active Substance: IBUPROFEN
  13. OMEPRAZOLE. [Concomitant]
     Active Substance: OMEPRAZOLE
  14. POT CHLORIDE ER [Concomitant]
  15. AZELASTINE. [Concomitant]
     Active Substance: AZELASTINE HYDROCHLORIDE
  16. ESOMEPRA MAG [Concomitant]
  17. METHENAM HIP [Concomitant]
  18. SERTRALINE [Concomitant]
     Active Substance: SERTRALINE HYDROCHLORIDE
  19. FLUTICASONE. [Concomitant]
     Active Substance: FLUTICASONE
  20. CEPHALEXIN. [Concomitant]
     Active Substance: CEPHALEXIN
  21. HYDROCO/APAP [Concomitant]
     Active Substance: ACETAMINOPHEN\HYDROCODONE
  22. PREDNISONE. [Concomitant]
     Active Substance: PREDNISONE
  23. VIORELE [Concomitant]
     Active Substance: DESOGESTREL\ETHINYL ESTRADIOL
  24. WIXELA INHUB [Concomitant]
     Active Substance: FLUTICASONE PROPIONATE\SALMETEROL XINAFOATE

REACTIONS (2)
  - Wrong technique in product usage process [None]
  - Injection site pain [None]
